FAERS Safety Report 8133862 (Version 4)
Quarter: 2013Q4

REPORT INFORMATION
  Report Type: Report from Study
  Country: JP (occurrence: JP)
  Receive Date: 20110913
  Receipt Date: 20131002
  Transmission Date: 20140711
  Serious: Yes (Hospitalization)
  Sender: FDA-Public Use
  Company Number: JP-GLAXOSMITHKLINE-B0746063A

PATIENT
  Age: 51 Year
  Sex: Female
  Weight: 56 kg

DRUGS (11)
  1. REVOLADE [Suspect]
     Indication: IMMUNE THROMBOCYTOPENIC PURPURA
     Route: 048
     Dates: start: 20101224, end: 20110216
  2. REVOLADE [Suspect]
     Indication: IMMUNE THROMBOCYTOPENIC PURPURA
     Dosage: 12.5MG PER DAY
     Route: 048
     Dates: start: 20110301, end: 20110316
  3. REVOLADE [Suspect]
     Indication: IMMUNE THROMBOCYTOPENIC PURPURA
     Route: 048
     Dates: start: 20110317, end: 20110330
  4. REVOLADE [Suspect]
     Indication: IMMUNE THROMBOCYTOPENIC PURPURA
     Route: 048
     Dates: start: 20110331, end: 20110427
  5. REVOLADE [Suspect]
     Indication: IMMUNE THROMBOCYTOPENIC PURPURA
     Route: 048
     Dates: start: 20110428, end: 20120118
  6. REVOLADE [Suspect]
     Indication: IMMUNE THROMBOCYTOPENIC PURPURA
     Route: 048
     Dates: start: 20120119
  7. PREDONINE [Concomitant]
     Indication: IMMUNE THROMBOCYTOPENIC PURPURA
     Route: 048
  8. DANAZOL [Concomitant]
     Indication: IMMUNE THROMBOCYTOPENIC PURPURA
     Route: 048
     Dates: end: 20110113
  9. URSO [Concomitant]
     Indication: PROPHYLAXIS
     Route: 048
     Dates: end: 20120222
  10. GLYCYRON [Concomitant]
     Indication: PROPHYLAXIS
     Route: 048
     Dates: end: 20120222
  11. TATHION [Concomitant]
     Indication: PROPHYLAXIS
     Route: 048
     Dates: start: 20110301, end: 20120222

REACTIONS (1)
  - Liver disorder [Recovered/Resolved]
